FAERS Safety Report 7893643-4 (Version None)
Quarter: 2011Q4

REPORT INFORMATION
  Report Type: 
  Country: None (occurrence: None)
  Receive Date: 20111104
  Receipt Date: 20111026
  Transmission Date: 20120403
  Serious: Yes (Other)
  Sender: FDA-Public Use
  Company Number: FR-GLAXOSMITHKLINE-B0758165A

PATIENT
  Sex: Male

DRUGS (2)
  1. CEFTAZIDIME SODIUM [Suspect]
     Indication: PNEUMOCYSTIS JIROVECI INFECTION
     Dosage: 6G PER DAY
     Route: 042
     Dates: start: 20110916, end: 20110929
  2. HEMODIALYSIS [Concomitant]
     Indication: RENAL FAILURE

REACTIONS (4)
  - SOMNOLENCE [None]
  - DRUG ADMINISTRATION ERROR [None]
  - OVERDOSE [None]
  - DRUG LEVEL INCREASED [None]
